FAERS Safety Report 15483078 (Version 1)
Quarter: 2018Q4

REPORT INFORMATION
  Report Type: Spontaneous
  Country: US (occurrence: US)
  Receive Date: 20181003
  Receipt Date: 20181003
  Transmission Date: 20190205
  Serious: Yes (Life-Threatening, Hospitalization)
  Sender: FDA-Public Use
  Company Number: None

PATIENT
  Age: 73 Year
  Sex: Male

DRUGS (2)
  1. NPH INSULIN [Suspect]
     Active Substance: INSULIN BEEF
     Indication: DIABETES MELLITUS
     Dosage: ?          OTHER DOSE:50 UNITS;?
     Route: 041
  2. INSULIN (REGULAR) [Suspect]
     Active Substance: INSULIN NOS
     Dosage: ?          OTHER DOSE:15 UNITS;?
     Route: 041

REACTIONS (4)
  - Loss of consciousness [None]
  - Hypoglycaemia [None]
  - Confusional state [None]
  - Road traffic accident [None]

NARRATIVE: CASE EVENT DATE: 20180727
